FAERS Safety Report 9899905 (Version 1)
Quarter: 2014Q1

REPORT INFORMATION
  Report Type: Not Available
  Country: US (occurrence: US)
  Receive Date: 20140214
  Receipt Date: 20140214
  Transmission Date: 20141002
  Serious: No
  Sender: FDA-Public Use
  Company Number: US-VIVUS-2013V1000792

PATIENT
  Age: 47 Year
  Sex: Female
  Weight: 104.87 kg

DRUGS (3)
  1. QSYMIA 3.75MG/23MG [Suspect]
     Indication: WEIGHT DECREASED
     Route: 048
     Dates: start: 20131008, end: 20131021
  2. SYNTHROID [Concomitant]
     Indication: HYPOTHYROIDISM
     Dosage: STARTED OVER 10 YEARS AGO
     Route: 048
  3. ALDACTONE [Concomitant]
     Indication: PRODUCT USED FOR UNKNOWN INDICATION
     Dosage: STARTED 6 YEARS AGO
     Route: 048
     Dates: start: 2007

REACTIONS (1)
  - Fatigue [Not Recovered/Not Resolved]
